FAERS Safety Report 9046226 (Version 1)
Quarter: 2013Q1

REPORT INFORMATION
  Report Type: Spontaneous
  Country: CA (occurrence: CA)
  Receive Date: 20130201
  Receipt Date: 20130201
  Transmission Date: 20140127
  Serious: Yes (Other)
  Sender: FDA-Public Use
  Company Number: PHHY2013CA009037

PATIENT
  Sex: Female

DRUGS (2)
  1. ESTRADOT [Suspect]
     Indication: MIGRAINE
     Route: 062
  2. ESTRADERM MX [Suspect]
     Indication: MIGRAINE
     Dosage: 3 TWICE A WEEK

REACTIONS (2)
  - Rash generalised [Unknown]
  - Yellow skin [Unknown]
